FAERS Safety Report 24259056 (Version 2)
Quarter: 2024Q3

REPORT INFORMATION
  Report Type: Report from Study
  Country: US (occurrence: US)
  Receive Date: 20240828
  Receipt Date: 20240919
  Transmission Date: 20241016
  Serious: Yes (Other)
  Sender: UPSHER SMITH LABORATORIES
  Company Number: US-UPSHER-SMITH LABORATORIES, LLC-20240800085

PATIENT
  Sex: Female
  Weight: 68.027 kg

DRUGS (7)
  1. ISOTRETINOIN [Suspect]
     Active Substance: ISOTRETINOIN
     Indication: Acne pustular
     Dosage: 40 MILLIGRAM, BID
     Route: 065
     Dates: start: 20240521, end: 20240818
  2. ISOTRETINOIN [Concomitant]
     Active Substance: ISOTRETINOIN
     Indication: Acne pustular
     Dosage: 30 MILLIGRAM, BID
     Route: 065
     Dates: start: 20240227, end: 20240326
  3. ISOTRETINOIN [Concomitant]
     Active Substance: ISOTRETINOIN
     Indication: Acne pustular
     Dosage: 40 MILLIGRAM
     Route: 065
  4. AMNESTEEM [Concomitant]
     Active Substance: ISOTRETINOIN
     Indication: Acne pustular
     Dosage: 40 MILLIGRAM
     Route: 065
  5. ISOTRETINOIN [Concomitant]
     Active Substance: ISOTRETINOIN
     Indication: Acne pustular
     Dosage: 30 MILLIGRAM
     Route: 065
  6. MYORISAN [Concomitant]
     Active Substance: ISOTRETINOIN
     Indication: Acne pustular
     Dosage: 30 MILLIGRAM
     Route: 065
  7. MYORISAN [Concomitant]
     Active Substance: ISOTRETINOIN
     Dosage: 40 MILLIGRAM
     Route: 065

REACTIONS (1)
  - Exposure during pregnancy [Unknown]
